FAERS Safety Report 20810111 (Version 1)
Quarter: 2022Q2

REPORT INFORMATION
  Report Type: Spontaneous
  Country: US (occurrence: US)
  Receive Date: 20220510
  Receipt Date: 20220510
  Transmission Date: 20220720
  Serious: No
  Sender: FDA-Public Use
  Company Number: US-OYSTER POINT PHARMA, INC.-2022OYS00090

PATIENT
  Age: 81 Year
  Sex: Female

DRUGS (3)
  1. TYRVAYA [Suspect]
     Active Substance: VARENICLINE TARTRATE
     Indication: Dry eye
     Dosage: 1 SQUIRT IN EACH NOSTRIL, 2/XDAY (12 HOURS OR SO APART)
     Route: 045
     Dates: start: 2021
  2. TYRVAYA [Suspect]
     Active Substance: VARENICLINE TARTRATE
     Dosage: 1 SQUIRT IN EACH NOSTRIL, 1X/DAY
     Route: 045
     Dates: start: 202201, end: 202201
  3. TYRVAYA [Suspect]
     Active Substance: VARENICLINE TARTRATE
     Dosage: 1 SQUIRT IN EACH NOSTRIL, 2/XDAY (12 HOURS OR SO APART)
     Route: 045
     Dates: start: 202201

REACTIONS (11)
  - Ophthalmic migraine [Recovered/Resolved]
  - Headache [Recovered/Resolved]
  - Malaise [Unknown]
  - Muscle tightness [Recovered/Resolved]
  - Visual impairment [Recovered/Resolved]
  - Metamorphopsia [Recovered/Resolved]
  - Photopsia [Recovered/Resolved]
  - Vitreous floaters [Recovered/Resolved]
  - Vision blurred [Recovered/Resolved]
  - Therapeutic response unexpected [Not Recovered/Not Resolved]
  - Intentional product misuse [Recovered/Resolved]

NARRATIVE: CASE EVENT DATE: 20220101
